FAERS Safety Report 9153111 (Version 1)
Quarter: 2013Q1

REPORT INFORMATION
  Report Type: Spontaneous
  Country: US (occurrence: None)
  Receive Date: 20130304
  Receipt Date: 20130304
  Transmission Date: 20140127
  Serious: Yes (Hospitalization)
  Sender: FDA-Public Use
  Company Number: None

PATIENT
  Age: 53 Year
  Sex: Male
  Weight: 92 kg

DRUGS (6)
  1. LORAZEPAM [Suspect]
     Route: 048
     Dates: start: 20130202, end: 20130212
  2. LORAZEPAM [Suspect]
     Dosage: LORAZEPAM 3 MG EVERY 4 HOURS AS NEEDED PO
     Route: 048
  3. CITALOPRAM [Concomitant]
  4. METOPROLOL SR [Concomitant]
  5. AMLODIPINE [Concomitant]
  6. SIMVASTATIN [Concomitant]

REACTIONS (1)
  - No therapeutic response [None]
